FAERS Safety Report 21372543 (Version 1)
Quarter: 2022Q3

REPORT INFORMATION
  Report Type: Spontaneous
  Country: DE (occurrence: DE)
  Receive Date: 20220924
  Receipt Date: 20220924
  Transmission Date: 20221027
  Serious: Yes (Hospitalization)
  Sender: FDA-Public Use
  Company Number: None

PATIENT
  Age: 45 Year
  Sex: Female
  Weight: 66 kg

DRUGS (1)
  1. ESCITALOPRAM [Suspect]
     Active Substance: ESCITALOPRAM OXALATE
     Indication: Product used for unknown indication
     Dosage: 10 MG, 1-0-0-0
     Route: 048

REACTIONS (4)
  - Constricted affect [Unknown]
  - Anxiety [Unknown]
  - Pain [Unknown]
  - Apathy [Unknown]

NARRATIVE: CASE EVENT DATE: 20210526
